FAERS Safety Report 6955235-0 (Version None)
Quarter: 2010Q3

REPORT INFORMATION
  Report Type: 
  Country: None (occurrence: None)
  Receive Date: 20100830
  Receipt Date: 20100816
  Transmission Date: 20110219
  Serious: Yes (Hospitalization, Other)
  Sender: FDA-Public Use
  Company Number: US-ELI_LILLY_AND_COMPANY-US201008004908

PATIENT
  Age: 28 Year
  Sex: Female

DRUGS (5)
  1. CYMBALTA [Suspect]
     Indication: BIPOLAR DISORDER
     Dosage: 60 MG, DAILY (1/D)
     Dates: start: 20100301, end: 20100501
  2. LITHIUM [Concomitant]
     Dosage: UNK, UNK
     Dates: start: 20000101
  3. METHADONE [Concomitant]
  4. XANAX [Concomitant]
  5. SYNTHROID [Concomitant]

REACTIONS (6)
  - ABNORMAL BEHAVIOUR [None]
  - APATHY [None]
  - DEPRESSION [None]
  - HEPATOMEGALY [None]
  - OFF LABEL USE [None]
  - SUICIDE ATTEMPT [None]
